FAERS Safety Report 5129952-1 (Version None)
Quarter: 2006Q4

REPORT INFORMATION
  Report Type: 
  Country: None (occurrence: None)
  Receive Date: 20061013
  Receipt Date: 20060922
  Transmission Date: 20070319
  Serious: Yes (Hospitalization, Other)
  Sender: FDA-Public Use
  Company Number: ENT 2006-0131

PATIENT
  Age: 68 Year
  Sex: Male

DRUGS (9)
  1. COMTAN [Suspect]
     Indication: PARKINSON'S DISEASE
  2. SINEMET [Concomitant]
  3. PRAMIPEXOLE DIHYDROCHLORIDE [Concomitant]
  4. ARTANE [Concomitant]
  5. AMANTADINE HCL [Concomitant]
  6. ENALAPRIL MALEATE [Concomitant]
  7. OMEPRAZOLE [Concomitant]
  8. BRONCHODILATORS [Concomitant]
  9. AMITRIPTYLINE HCL [Concomitant]

REACTIONS (2)
  - INFECTION [None]
  - NEUROLEPTIC MALIGNANT SYNDROME [None]
